FAERS Safety Report 14743987 (Version 2)
Quarter: 2018Q2

REPORT INFORMATION
  Report Type: Spontaneous
  Country: US (occurrence: US)
  Receive Date: 20180411
  Receipt Date: 20180416
  Transmission Date: 20180711
  Serious: No
  Sender: FDA-Public Use
  Company Number: US-UNITED THERAPEUTICS-UNT-2018-003403

PATIENT
  Age: 50 Year
  Sex: Male

DRUGS (8)
  1. ORENITRAM [Suspect]
     Active Substance: TREPROSTINIL
     Indication: PULMONARY HYPERTENSION
     Dosage: 2.125 MG, TID
     Route: 048
  2. LETAIRIS [Suspect]
     Active Substance: AMBRISENTAN
     Indication: PULMONARY HYPERTENSION
     Dosage: 10 MG, QD
     Route: 065
     Dates: start: 20161209
  3. ORENITRAM [Suspect]
     Active Substance: TREPROSTINIL
     Dosage: 2.5 MG, TID
     Route: 048
  4. ADCIRCA [Suspect]
     Active Substance: TADALAFIL
     Indication: PULMONARY HYPERTENSION
     Dosage: 40 MG
     Route: 065
  5. ADCIRCA [Suspect]
     Active Substance: TADALAFIL
     Dosage: 20 MG, BID
     Route: 065
  6. ORENITRAM [Suspect]
     Active Substance: TREPROSTINIL
     Indication: PULMONARY ARTERIAL HYPERTENSION
     Dosage: 1.625 MG, TID
     Route: 048
     Dates: start: 20180102
  7. OXYGEN. [Concomitant]
     Active Substance: OXYGEN
     Indication: PRODUCT USED FOR UNKNOWN INDICATION
     Route: 065
  8. ORENITRAM [Suspect]
     Active Substance: TREPROSTINIL
     Dosage: 3 MG, TID
     Route: 048
     Dates: start: 20180103

REACTIONS (4)
  - Diarrhoea [Unknown]
  - Laryngitis [Unknown]
  - Oxygen consumption increased [Unknown]
  - Dyspnoea [Not Recovered/Not Resolved]
